FAERS Safety Report 5270740-3 (Version None)
Quarter: 2007Q1

REPORT INFORMATION
  Report Type: 
  Country: None (occurrence: None)
  Receive Date: 20070319
  Receipt Date: 20070319
  Transmission Date: 20070707
  Serious: Yes (Death, Life-Threatening, Hospitalization, Disabling, Other)
  Sender: FDA-Public Use
  Company Number: None

PATIENT
  Sex: Female
  Weight: 55.9 kg

DRUGS (2)
  1. BEVACIZUMAB N/A GENENTECH [Suspect]
     Indication: METASTASIS
     Dosage: 10 MG/KG Q2 WEEKS IV
     Route: 042
     Dates: start: 20061204, end: 20070228
  2. BEVACIZUMAB N/A GENENTECH [Suspect]
     Indication: RENAL CELL CARCINOMA STAGE UNSPECIFIED
     Dosage: 10 MG/KG Q2 WEEKS IV
     Route: 042
     Dates: start: 20061204, end: 20070228

REACTIONS (4)
  - CARDIAC ARREST [None]
  - ENCEPHALOPATHY [None]
  - HAEMOPTYSIS [None]
  - HAEMORRHAGE [None]
